FAERS Safety Report 7300167-1 (Version None)
Quarter: 2011Q1

REPORT INFORMATION
  Report Type: 
  Country: None (occurrence: None)
  Receive Date: 20110217
  Receipt Date: 20110209
  Transmission Date: 20110831
  Serious: Yes (Hospitalization)
  Sender: FDA-Public Use
  Company Number: US-BIOGENIDEC-2010BI027252

PATIENT
  Age: 53 Year
  Sex: Female
  Weight: 81 kg

DRUGS (4)
  1. AVONEX [Suspect]
     Indication: MULTIPLE SCLEROSIS
     Route: 030
     Dates: start: 20000427, end: 20050101
  2. AVONEX [Suspect]
     Route: 030
     Dates: start: 20050101, end: 20080101
  3. TOPROL-XL [Concomitant]
     Indication: HYPERTENSION
  4. AVONEX [Suspect]
     Route: 030
     Dates: start: 20100301

REACTIONS (19)
  - H1N1 INFLUENZA [None]
  - UPPER LIMB FRACTURE [None]
  - ABASIA [None]
  - WRIST FRACTURE [None]
  - BACK DISORDER [None]
  - HYPOAESTHESIA [None]
  - LUMBAR VERTEBRAL FRACTURE [None]
  - SPINAL FRACTURE [None]
  - BACK PAIN [None]
  - PNEUMONIA [None]
  - MOBILITY DECREASED [None]
  - LOSS OF CONSCIOUSNESS [None]
  - JOINT SWELLING [None]
  - FALL [None]
  - INTERVERTEBRAL DISC DEGENERATION [None]
  - MULTIPLE SCLEROSIS RELAPSE [None]
  - GASTRIC ULCER [None]
  - EYE DISORDER [None]
  - DIZZINESS [None]
